FAERS Safety Report 8535495-5 (Version None)
Quarter: 2012Q3

REPORT INFORMATION
  Report Type: 
  Country: None (occurrence: None)
  Receive Date: 20120718
  Receipt Date: 20120718
  Transmission Date: 20120928
  Serious: Yes (Other)
  Sender: FDA-Public Use
  Company Number: None

PATIENT
  Age: 57 Year
  Sex: Female
  Weight: 52.1637 kg

DRUGS (7)
  1. EFFEXOR [Concomitant]
  2. CLONAZEPAM [Concomitant]
  3. TOPAMAX [Concomitant]
  4. INDOMETHACIN [Concomitant]
  5. FORTEO [Suspect]
     Indication: OSTEOPOROSIS
     Dosage: 20 MCG DAILY OTHER
     Route: 050
     Dates: start: 20120301, end: 20120601
  6. RELPAX [Concomitant]
  7. FIORCET [Concomitant]

REACTIONS (1)
  - RESTLESS LEGS SYNDROME [None]
